FAERS Safety Report 10757750 (Version 1)
Quarter: 2015Q1

REPORT INFORMATION
  Report Type: Spontaneous
  Country: US (occurrence: None)
  Receive Date: 20150202
  Receipt Date: 20150202
  Transmission Date: 20150721
  Serious: Yes (Disabling)
  Sender: FDA-Public Use
  Company Number: None

PATIENT
  Age: 49 Year
  Sex: Female
  Weight: 82.56 kg

DRUGS (1)
  1. SEPTRA DS [Suspect]
     Active Substance: SULFAMETHOXAZOLE\TRIMETHOPRIM
     Indication: URINARY TRACT INFECTION
     Dosage: TAKEN BY MOUTH
     Dates: start: 20150125

REACTIONS (10)
  - Myalgia [None]
  - Viral infection [None]
  - Punctate keratitis [None]
  - Oesophagitis [None]
  - Lacrimation increased [None]
  - Similar reaction on previous exposure to drug [None]
  - Arthralgia [None]
  - Eye pain [None]
  - Urinary tract infection [None]
  - Photophobia [None]

NARRATIVE: CASE EVENT DATE: 20150125
